FAERS Safety Report 9682589 (Version 2)
Quarter: 2014Q2

REPORT INFORMATION
  Report Type: Spontaneous
  Country: DE (occurrence: DE)
  Receive Date: 20131112
  Receipt Date: 20140513
  Transmission Date: 20141212
  Serious: Yes (Other)
  Sender: FDA-Public Use
  Company Number: DE-UCBSA-102644

PATIENT
  Sex: Female

DRUGS (2)
  1. KEPPRA [Suspect]
     Dosage: UNKNOWN DOSE
  2. LEVETIRACETAM UCB [Suspect]
     Dosage: UNKNOWN DOSE

REACTIONS (3)
  - Haemolysis [Unknown]
  - Thrombocytopenia [Unknown]
  - Evans syndrome [Unknown]
